FAERS Safety Report 5522027-9 (Version None)
Quarter: 2007Q4

REPORT INFORMATION
  Report Type: 
  Country: None (occurrence: None)
  Receive Date: 20071115
  Receipt Date: 20071107
  Transmission Date: 20080405
  Serious: Yes (Death)
  Sender: FDA-Public Use
  Company Number: 2007-04996

PATIENT
  Age: 75 Year
  Sex: Male

DRUGS (5)
  1. FLUOROURACIL [Suspect]
     Indication: PANCREATIC CARCINOMA METASTATIC
     Dosage: 1/WEEK X 3, INTRAVENOUS
     Route: 042
     Dates: start: 20070101, end: 20070101
  2. OXYCONTIN [Concomitant]
  3. WARFARIN SODIUM [Concomitant]
  4. ALPRAZOLAM [Concomitant]
  5. ZOLPIDEM [Concomitant]

REACTIONS (16)
  - ANAEMIA [None]
  - ANOREXIA [None]
  - ASTHENIA [None]
  - BRAIN STEM HAEMORRHAGE [None]
  - CANDIDIASIS [None]
  - COAGULOPATHY [None]
  - DUODENAL ULCER PERFORATION [None]
  - HYPERTENSION [None]
  - LACUNAR INFARCTION [None]
  - MICROANGIOPATHY [None]
  - NAUSEA [None]
  - NEUROTOXICITY [None]
  - PANCYTOPENIA [None]
  - SYSTEMIC CANDIDA [None]
  - THERAPEUTIC AGENT TOXICITY [None]
  - WEIGHT DECREASED [None]
